FAERS Safety Report 4650738-6 (Version None)
Quarter: 2005Q2

REPORT INFORMATION
  Report Type: 
  Country: None (occurrence: None)
  Receive Date: 20050503
  Receipt Date: 20040816
  Transmission Date: 20051028
  Serious: Yes (Hospitalization)
  Sender: FDA-Public Use
  Company Number: US-2004-BP-06890BP

PATIENT
  Age: 80 Year
  Sex: Female

DRUGS (5)
  1. CLONIDINE HCL [Suspect]
     Indication: HYPERTENSION
     Route: 048
     Dates: start: 20040101, end: 20040101
  2. LISINOPRIL [Concomitant]
  3. TOPROL-XL [Concomitant]
  4. DIOVAN [Concomitant]
  5. DARVOCET [Concomitant]

REACTIONS (1)
  - BLOOD PRESSURE INCREASED [None]
